FAERS Safety Report 8755995 (Version 3)
Quarter: 2012Q4

REPORT INFORMATION
  Report Type: 
  Country: US (occurrence: None)
  Receive Date: 20120814
  Receipt Date: 20120828
  Transmission Date: 20130627
  Serious: Yes (Other)
  Sender: FDA-Public Use
  Company Number: 218379

PATIENT
  Age: 85 Year
  Sex: Male

DRUGS (4)
  1. PICATO [Suspect]
     Indication: DRUG USE FOR UNKNOWN INDICATION
     Route: 061
     Dates: start: 20120601, end: 20120603
  2. SELENIUM SULFATE (SELENIUM SULFIDE) (2.5%) [Concomitant]
  3. KETOCONAZOLE (KETOCONAZOLE) (2%, CREAM) [Concomitant]
  4. BACTROBAN (MUPIROCIN) (2%, OINTMENT) [Concomitant]

REACTIONS (1)
  - Abscess bacterial [None]
